FAERS Safety Report 18165528 (Version 4)
Quarter: 2021Q3

REPORT INFORMATION
  Report Type: Spontaneous
  Country: US (occurrence: US)
  Receive Date: 20200818
  Receipt Date: 20210910
  Transmission Date: 20211014
  Serious: Yes (Other)
  Sender: FDA-Public Use
  Company Number: US-GILEAD-2020-0489964

PATIENT
  Age: 51 Year
  Sex: Male
  Weight: 91.16 kg

DRUGS (36)
  1. VIREAD [Suspect]
     Active Substance: TENOFOVIR DISOPROXIL FUMARATE
     Dosage: UNK
     Route: 048
     Dates: start: 200303, end: 201205
  2. PREDNISOLONE. [Concomitant]
     Active Substance: PREDNISOLONE
  3. METFORMIN [Concomitant]
     Active Substance: METFORMIN HYDROCHLORIDE
  4. BACITRACIN. [Concomitant]
     Active Substance: BACITRACIN
  5. ALBUTEROL SULFATE. [Concomitant]
     Active Substance: ALBUTEROL SULFATE
  6. IVERMECTIN. [Concomitant]
     Active Substance: IVERMECTIN
  7. VIREAD [Suspect]
     Active Substance: TENOFOVIR DISOPROXIL FUMARATE
     Dosage: UNK
     Route: 048
     Dates: start: 20120531, end: 20150426
  8. CETIRIZINE [Concomitant]
     Active Substance: CETIRIZINE HYDROCHLORIDE
  9. BENZONATATE. [Concomitant]
     Active Substance: BENZONATATE
  10. ONDANSETRON [Concomitant]
     Active Substance: ONDANSETRON
  11. CLOTRIMAZOLE. [Concomitant]
     Active Substance: CLOTRIMAZOLE
  12. INTELENCE [Concomitant]
     Active Substance: ETRAVIRINE
  13. TRIUMEQ [Concomitant]
     Active Substance: ABACAVIR SULFATE\DOLUTEGRAVIR SODIUM\LAMIVUDINE
  14. PEGASYS [Concomitant]
     Active Substance: PEGINTERFERON ALFA-2A
  15. NEUPOGEN [Concomitant]
     Active Substance: FILGRASTIM
  16. VICTRELIS [Concomitant]
     Active Substance: BOCEPREVIR
  17. MEDROL [Concomitant]
     Active Substance: METHYLPREDNISOLONE
  18. VIREAD [Suspect]
     Active Substance: TENOFOVIR DISOPROXIL FUMARATE
     Indication: HIV INFECTION
     Dosage: UNK
     Route: 048
     Dates: start: 200303, end: 2012
  19. KALETRA [Concomitant]
     Active Substance: LOPINAVIR\RITONAVIR
  20. DIPHENHYDRAMINE. [Concomitant]
     Active Substance: DIPHENHYDRAMINE
  21. HYDROCORTISONE. [Concomitant]
     Active Substance: HYDROCORTISONE
  22. SUSTIVA [Concomitant]
     Active Substance: EFAVIRENZ
  23. RIBAVIRIN. [Concomitant]
     Active Substance: RIBAVIRIN
  24. VIREAD [Suspect]
     Active Substance: TENOFOVIR DISOPROXIL FUMARATE
     Dosage: UNK
     Route: 048
     Dates: start: 200303, end: 20150426
  25. TRAZODONE [Concomitant]
     Active Substance: TRAZODONE HYDROCHLORIDE
  26. GABAPENTIN. [Concomitant]
     Active Substance: GABAPENTIN
  27. FLEXERIL [Concomitant]
     Active Substance: CYCLOBENZAPRINE HYDROCHLORIDE
  28. BETAMETHASONE DIPROPIONATE. [Concomitant]
     Active Substance: BETAMETHASONE DIPROPIONATE
  29. AMLODIPINE BESILATE [Concomitant]
     Active Substance: AMLODIPINE BESYLATE
  30. ATORVASTATIN [Concomitant]
     Active Substance: ATORVASTATIN
  31. BACTRIM [Concomitant]
     Active Substance: SULFAMETHOXAZOLE\TRIMETHOPRIM
  32. FLUTICASONE. [Concomitant]
     Active Substance: FLUTICASONE
  33. AZITHROMYCIN ANHYDROUS. [Concomitant]
     Active Substance: AZITHROMYCIN ANHYDROUS
  34. ANDROGEL [Concomitant]
     Active Substance: TESTOSTERONE
  35. DOXYCYCLINE. [Concomitant]
     Active Substance: DOXYCYCLINE
  36. PERMETHRIN. [Concomitant]
     Active Substance: PERMETHRIN

REACTIONS (10)
  - Chronic kidney disease [Not Recovered/Not Resolved]
  - Renal impairment [Recovered/Resolved]
  - Hypokinesia [Not Recovered/Not Resolved]
  - Emotional distress [Not Recovered/Not Resolved]
  - Anxiety [Not Recovered/Not Resolved]
  - Anhedonia [Not Recovered/Not Resolved]
  - Asthenia [Not Recovered/Not Resolved]
  - Blindness [Unknown]
  - Blood creatinine increased [Unknown]
  - Pain [Not Recovered/Not Resolved]

NARRATIVE: CASE EVENT DATE: 20140207
